FAERS Safety Report 13783898 (Version 1)
Quarter: 2017Q3

REPORT INFORMATION
  Report Type: Spontaneous
  Country: US (occurrence: US)
  Receive Date: 20170724
  Receipt Date: 20170724
  Transmission Date: 20171127
  Serious: No
  Sender: FDA-Public Use
  Company Number: US-009507513-1707USA004607

PATIENT
  Sex: Female

DRUGS (2)
  1. ZOSTAVAX [Suspect]
     Active Substance: VARICELLA-ZOSTER VIRUS STRAIN OKA/MERCK LIVE ANTIGEN
     Dates: start: 20170711, end: 20170711
  2. STERILE DILUENT [Suspect]
     Active Substance: WATER
     Indication: MEDICATION DILUTION
     Dosage: UNK, UNKNOWN
     Dates: start: 20170711

REACTIONS (8)
  - Exposure during pregnancy [Unknown]
  - Product quality issue [Unknown]
  - Exposure via eye contact [Unknown]
  - No adverse event [Unknown]
  - Exposure via skin contact [Unknown]
  - Exposure via ingestion [Unknown]
  - Accidental exposure to product [Unknown]
  - Occupational exposure to product [Unknown]

NARRATIVE: CASE EVENT DATE: 20170711
